FAERS Safety Report 22711547 (Version 2)
Quarter: 2024Q1

REPORT INFORMATION
  Report Type: Spontaneous
  Country: US (occurrence: US)
  Receive Date: 20230717
  Receipt Date: 20240219
  Transmission Date: 20240409
  Serious: Yes (Hospitalization, Other)
  Sender: FDA-Public Use
  Company Number: None

PATIENT
  Age: 86 Year
  Sex: Male

DRUGS (4)
  1. MEMANTINE HYDROCHLORIDE [Suspect]
     Active Substance: MEMANTINE HYDROCHLORIDE
     Indication: Product used for unknown indication
     Dosage: 60 MISSING PILLS FROM HIS MEMANTINE BOTTLE
  2. MEMANTINE HYDROCHLORIDE [Suspect]
     Active Substance: MEMANTINE HYDROCHLORIDE
     Dosage: 5 MG, 2 TIMES PER DAY
  3. METOPROLOL SUCCINATE [Concomitant]
     Active Substance: METOPROLOL SUCCINATE
     Indication: Product used for unknown indication
     Dosage: 50 MG DAILY
  4. MECLIZINE [Concomitant]
     Active Substance: MECLIZINE HYDROCHLORIDE
     Indication: Dizziness
     Dosage: 12.5 MG EVERY 8 H AS NEEDED

REACTIONS (6)
  - Hypertension [Recovered/Resolved]
  - Overdose [Recovered/Resolved]
  - Echolalia [Recovered/Resolved]
  - Catatonia [Recovered/Resolved]
  - Agitation [Recovered/Resolved]
  - Hallucination, auditory [Recovered/Resolved]
